FAERS Safety Report 9535019 (Version 2)
Quarter: 2013Q4

REPORT INFORMATION
  Report Type: Spontaneous
  Country: US (occurrence: US)
  Receive Date: 20130918
  Receipt Date: 20131016
  Transmission Date: 20140711
  Serious: Yes (Death, Hospitalization)
  Sender: FDA-Public Use
  Company Number: US-PFIZER INC-2013267228

PATIENT
  Age: 60 Year
  Sex: Male

DRUGS (20)
  1. INSPRA [Suspect]
     Dosage: 50 MG, DAILY
     Route: 048
  2. VITAMIN B12 [Concomitant]
     Dosage: 1 DF, 2X/DAY
     Route: 048
  3. ASPIRIN [Concomitant]
     Dosage: 81 MG, DAILY
     Route: 048
  4. CALCIUM CITRATE + D [Concomitant]
     Dosage: 400 IU / 500 UNITS, 1 TABLET 3X/DAY
     Route: 048
  5. FLINTSTONES COMPLETE [Concomitant]
     Dosage: 2 DF, DAILY
     Route: 048
  6. FLOMAX [Concomitant]
     Dosage: 0.4 MG, DAILY
     Route: 048
  7. VITAMIN B1 [Concomitant]
     Dosage: 100 MG, DAILY
     Route: 048
  8. LOPRESSOR [Concomitant]
     Dosage: 50 MG, 2X/DAY
     Route: 048
  9. ACETAMINOPHEN [Concomitant]
     Dosage: 500 MG, AS NEEDED
     Route: 048
  10. ZOLOFT [Concomitant]
     Dosage: 50 MG, DAILY
     Route: 048
  11. HYDROXYZINE [Concomitant]
     Indication: PRURITUS
     Dosage: 1 TABLET OF 50 MG FOUR TIMES A DAY AS NEEDED
     Route: 048
  12. OMEPRAZOLE [Concomitant]
     Dosage: 20 MG, 2X/DAY
     Route: 048
  13. VITAMIN D3 [Concomitant]
     Dosage: UNK
  14. BUMETANIDE [Concomitant]
     Dosage: 1 MG, 4X/DAY (4 TABLETS BY MOUTH EVERY MORNING)
     Route: 048
  15. TYLENOL [Concomitant]
     Dosage: 650 MG, Q6H PRN
     Route: 048
  16. ONDANSETRON [Concomitant]
     Dosage: 4 MG, (1ST Q6H)
     Route: 042
  17. ATIVAN [Concomitant]
     Dosage: 0.5 MG, Q2H PRN
     Route: 042
  18. DILAUDID [Concomitant]
     Dosage: 1.5 MG, 1ST QH3 X 3DAYS
     Route: 042
  19. DILAUDID [Concomitant]
     Dosage: 1 MG, Q2H PRN X 3DAYS
     Route: 042
  20. ROBINUL [Concomitant]
     Dosage: 0.2 MG, Q8H PRN
     Route: 042

REACTIONS (2)
  - Hepatorenal syndrome [Fatal]
  - Urinary tract infection [Recovered/Resolved]
